FAERS Safety Report 22288437 (Version 1)
Quarter: 2023Q2

REPORT INFORMATION
  Report Type: Report from Study
  Country: US (occurrence: US)
  Receive Date: 20230505
  Receipt Date: 20230505
  Transmission Date: 20230722
  Serious: No
  Sender: FDA-Public Use
  Company Number: US-002147023-NVSC2023US099907

PATIENT
  Sex: Male

DRUGS (10)
  1. CLOBETASOL PROPIONATE [Suspect]
     Active Substance: CLOBETASOL PROPIONATE
     Indication: Psoriasis
     Dosage: UNK
     Route: 061
  2. CLOBETASOL PROPIONATE [Suspect]
     Active Substance: CLOBETASOL PROPIONATE
     Indication: Tinea pedis
  3. NYSTATIN\TRIAMCINOLONE ACETONIDE [Suspect]
     Active Substance: NYSTATIN\TRIAMCINOLONE ACETONIDE
     Indication: Psoriasis
     Dosage: UNK (100,000 UNIT/G-0.1%)
     Route: 061
  4. NYSTATIN\TRIAMCINOLONE ACETONIDE [Suspect]
     Active Substance: NYSTATIN\TRIAMCINOLONE ACETONIDE
     Indication: Tinea pedis
  5. CLINDAMYCIN [Suspect]
     Active Substance: CLINDAMYCIN
     Indication: Psoriasis
     Dosage: UNK
     Route: 065
  6. CLINDAMYCIN [Suspect]
     Active Substance: CLINDAMYCIN
     Indication: Tinea pedis
  7. CALCIPOTRIENE [Suspect]
     Active Substance: CALCIPOTRIENE
     Indication: Psoriasis
     Dosage: UNK
     Route: 061
  8. CALCIPOTRIENE [Suspect]
     Active Substance: CALCIPOTRIENE
     Indication: Tinea pedis
  9. CALCIPOTRIENE [Suspect]
     Active Substance: CALCIPOTRIENE
     Indication: Psoriasis
     Dosage: UNK (CALCIPOTRIENE-BETAMETHASONE 0.005- 0.064%)
     Route: 065
  10. CALCIPOTRIENE [Suspect]
     Active Substance: CALCIPOTRIENE
     Indication: Tinea pedis

REACTIONS (2)
  - Psoriasis [Unknown]
  - Drug ineffective [Unknown]
